FAERS Safety Report 21064626 (Version 1)
Quarter: 2022Q3

REPORT INFORMATION
  Report Type: Report from Study
  Country: US (occurrence: US)
  Receive Date: 20220711
  Receipt Date: 20220711
  Transmission Date: 20221026
  Serious: Yes (Hospitalization)
  Sender: FDA-Public Use
  Company Number: US-PFIZER INC-2019345158

PATIENT
  Age: 14 Year
  Sex: Female
  Weight: 65.9 kg

DRUGS (4)
  1. ABROCITINIB [Suspect]
     Active Substance: ABROCITINIB
     Indication: Dermatitis atopic
     Dosage: 100 MG, DAILY
     Route: 048
     Dates: start: 20190227, end: 20190805
  2. TRIAMCINOLONE ACETONIDE [Concomitant]
     Active Substance: TRIAMCINOLONE ACETONIDE
     Indication: Dermatitis atopic
     Dosage: 0.1 %, 3X/DAY
     Route: 061
     Dates: start: 20170301
  3. ATARAX [Concomitant]
     Active Substance: HYDROXYZINE HYDROCHLORIDE
     Indication: Dermatitis atopic
     Dosage: 25 MG, 1X/DAY EVERY NIGHT AT BEDTIME (QHS)
     Route: 048
     Dates: start: 20170301
  4. WESTCORT [Concomitant]
     Active Substance: HYDROCORTISONE VALERATE
     Indication: Dermatitis atopic
     Dosage: 0.2 %, 2X/DAY
     Route: 061
     Dates: start: 20190607

REACTIONS (3)
  - Depression [Recovered/Resolved]
  - Skin infection [Recovered/Resolved]
  - Dermatitis atopic [Recovered/Resolved]

NARRATIVE: CASE EVENT DATE: 20190807
